FAERS Safety Report 18369686 (Version 1)
Quarter: 2020Q4

REPORT INFORMATION
  Report Type: Spontaneous
  Country: US (occurrence: US)
  Receive Date: 20201012
  Receipt Date: 20201012
  Transmission Date: 20210114
  Serious: No
  Sender: FDA-Public Use
  Company Number: US-APOTEX-2020AP011931

PATIENT

DRUGS (2)
  1. MIRTAZAPINE. [Suspect]
     Active Substance: MIRTAZAPINE
     Indication: ANGELMAN^S SYNDROME
  2. MIRTAZAPINE. [Suspect]
     Active Substance: MIRTAZAPINE
     Indication: SLEEP DISORDER
     Dosage: UNK, Q.H.S. 3.75 TO 30 MG  (THERAPY DURATION 0-30 WEEKS)
     Route: 065

REACTIONS (3)
  - Product use in unapproved indication [Unknown]
  - Weight increased [Unknown]
  - Product use issue [Unknown]
